FAERS Safety Report 7833442-2 (Version None)
Quarter: 2011Q4

REPORT INFORMATION
  Report Type: 
  Country: None (occurrence: None)
  Receive Date: 20111024
  Receipt Date: 20100826
  Transmission Date: 20120403
  Serious: No
  Sender: FDA-Public Use
  Company Number: US-BAYER-201031819NA

PATIENT
  Age: 65 Year
  Sex: Male

DRUGS (7)
  1. CIPROFLOXACIN [Suspect]
     Indication: CYSTITIS
     Dosage: 500 MG, BID
     Route: 048
     Dates: start: 20100816, end: 20100820
  2. DETROL [Concomitant]
  3. WELLBUTRIN [Concomitant]
  4. MIRAPEX [Concomitant]
  5. RAMIPRIL [Concomitant]
  6. CONCERTA [Concomitant]
  7. SIMVASTATIN [Concomitant]

REACTIONS (2)
  - VISION BLURRED [None]
  - DECREASED APPETITE [None]
